FAERS Safety Report 19825759 (Version 5)
Quarter: 2022Q2

REPORT INFORMATION
  Report Type: Report from Study
  Country: US (occurrence: US)
  Receive Date: 20210914
  Receipt Date: 20220407
  Transmission Date: 20220721
  Serious: No
  Sender: FDA-Public Use
  Company Number: US-NOVARTISTESTPH-NVSC2021US206696

PATIENT
  Sex: Male

DRUGS (1)
  1. ENTRESTO [Suspect]
     Active Substance: SACUBITRIL\VALSARTAN
     Indication: Product used for unknown indication
     Dosage: 1 DOSAGE FORM, BID, (49/51 MG)
     Route: 048

REACTIONS (8)
  - COVID-19 [Unknown]
  - Cough [Unknown]
  - Rhinorrhoea [Unknown]
  - Arthralgia [Unknown]
  - Heart rate abnormal [Unknown]
  - Joint swelling [Unknown]
  - Sinus disorder [Unknown]
  - Seasonal allergy [Unknown]
